FAERS Safety Report 7587346-3 (Version None)
Quarter: 2011Q3

REPORT INFORMATION
  Report Type: 
  Country: None (occurrence: None)
  Receive Date: 20110701
  Receipt Date: 20110622
  Transmission Date: 20111222
  Serious: Yes (Hospitalization)
  Sender: FDA-Public Use
  Company Number: FR-ASTRAZENECA-2011SE38169

PATIENT
  Age: 44 Year
  Sex: Male

DRUGS (8)
  1. CRESTOR [Suspect]
     Route: 048
     Dates: start: 20110213
  2. EFFIENT [Suspect]
     Route: 048
     Dates: start: 20110217
  3. VISIPAQUE [Suspect]
     Route: 042
     Dates: start: 20110216, end: 20110216
  4. TENORMIN [Suspect]
     Route: 048
     Dates: start: 20110215
  5. VISIPAQUE [Suspect]
     Route: 042
     Dates: start: 20110214, end: 20110214
  6. ASPIRIN [Suspect]
     Route: 065
     Dates: start: 20110213
  7. PERINDOPRIL ERBUMINE [Suspect]
     Route: 048
     Dates: start: 20110215
  8. DIAMICRON [Suspect]
     Route: 048
     Dates: start: 20110217

REACTIONS (4)
  - SKIN EXFOLIATION [None]
  - CHEILITIS [None]
  - RASH MACULO-PAPULAR [None]
  - DYSGEUSIA [None]
